FAERS Safety Report 8320975-8 (Version None)
Quarter: 2012Q2

REPORT INFORMATION
  Report Type: 
  Country: None (occurrence: None)
  Receive Date: 20120430
  Receipt Date: 20120424
  Transmission Date: 20120825
  Serious: Yes (Other)
  Sender: FDA-Public Use
  Company Number: GXKR2009GB13823

PATIENT
  Age: 39 Year
  Sex: Male

DRUGS (2)
  1. FLUCLOXACILLIN [Suspect]
     Route: 048
  2. TERBINAFINE HCL [Suspect]
     Indication: NAIL DISORDER
     Route: 048

REACTIONS (3)
  - RASH [None]
  - BLISTER [None]
  - HYPERSENSITIVITY [None]
